FAERS Safety Report 6244777-1 (Version None)
Quarter: 2009Q2

REPORT INFORMATION
  Report Type: 
  Country: None (occurrence: None)
  Receive Date: 20090625
  Receipt Date: 20090613
  Transmission Date: 20091009
  Serious: Yes (Death)
  Sender: FDA-Public Use
  Company Number: TW-BAXTER-2009BH010103

PATIENT
  Sex: Male

DRUGS (5)
  1. DIANEAL [Suspect]
     Indication: PERITONEAL DIALYSIS
     Route: 033
     Dates: start: 20090501
  2. DIANEAL [Suspect]
     Route: 033
     Dates: start: 20090501
  3. DIANEAL [Suspect]
     Route: 033
     Dates: start: 20090201, end: 20090501
  4. NUTRINEAL [Suspect]
     Indication: PERITONEAL DIALYSIS
     Route: 033
     Dates: start: 20090501
  5. NUTRINEAL [Suspect]
     Route: 033
     Dates: start: 20090201, end: 20090501

REACTIONS (1)
  - MYOCARDIAL INFARCTION [None]
